FAERS Safety Report 5608176-5 (Version None)
Quarter: 2008Q1

REPORT INFORMATION
  Report Type: 
  Country: None (occurrence: None)
  Receive Date: 20080125
  Receipt Date: 20080110
  Transmission Date: 20080703
  Serious: Yes (Other)
  Sender: FDA-Public Use
  Company Number: DSA_31322_2008

PATIENT
  Sex: Female

DRUGS (11)
  1. LORAZEPAM [Suspect]
     Indication: DRUG USE FOR UNKNOWN INDICATION
     Dosage: (ORAL)
     Route: 048
     Dates: start: 20070301, end: 20070401
  2. LORAZEPAM [Suspect]
     Indication: DRUG USE FOR UNKNOWN INDICATION
     Dosage: (ORAL)
     Route: 048
     Dates: start: 20061201
  3. CITALOPRAM HYDROBROMIDE [Suspect]
     Indication: DRUG USE FOR UNKNOWN INDICATION
  4. DIPIPERON ( PIPAMPERONE) [Suspect]
     Indication: DRUG USE FOR UNKNOWN INDICATION
  5. MIRTAZAPINE [Suspect]
     Indication: DRUG USE FOR UNKNOWN INDICATION
     Dates: start: 20070301, end: 20070509
  6. RISPERDAL [Suspect]
     Indication: DRUG USE FOR UNKNOWN INDICATION
  7. RISPERDAL CONSTA [Suspect]
     Indication: DRUG USE FOR UNKNOWN INDICATION
     Dates: start: 20070201
  8. SEROQUEL [Suspect]
     Indication: DRUG USE FOR UNKNOWN INDICATION
     Dates: start: 20070301
  9. SOLIAN (AMISULPRIDE) [Suspect]
     Indication: DRUG USE FOR UNKNOWN INDICATION
     Dosage: (ORAL)
     Route: 048
     Dates: start: 20071215
  10. ZYPREXA [Suspect]
     Indication: DRUG USE FOR UNKNOWN INDICATION
     Dates: start: 20061201, end: 20070201
  11. HYPNOTICS AND SEDATIVES (SLEEPING TABLETS) [Concomitant]
     Indication: INSOMNIA
     Dosage: (DF)
     Dates: start: 20070201, end: 20070201

REACTIONS (33)
  - AMENORRHOEA [None]
  - ANHEDONIA [None]
  - APATHY [None]
  - BALANCE DISORDER [None]
  - BLOOD PROLACTIN INCREASED [None]
  - CARDIOVASCULAR INSUFFICIENCY [None]
  - CONSTIPATION [None]
  - DEPRESSION [None]
  - DRUG DEPENDENCE [None]
  - DRUG INEFFECTIVE [None]
  - DRUG WITHDRAWAL SYNDROME [None]
  - FATIGUE [None]
  - FEELING ABNORMAL [None]
  - HOT FLUSH [None]
  - HUNGER [None]
  - HYPERSOMNIA [None]
  - ILL-DEFINED DISORDER [None]
  - INDIFFERENCE [None]
  - MALAISE [None]
  - MENTAL IMPAIRMENT [None]
  - MOVEMENT DISORDER [None]
  - MUSCULOSKELETAL STIFFNESS [None]
  - RESTLESSNESS [None]
  - SCHIZOPHRENIA [None]
  - SLEEP DISORDER [None]
  - SOCIAL AVOIDANT BEHAVIOUR [None]
  - SUICIDAL IDEATION [None]
  - TACHYCARDIA [None]
  - TINNITUS [None]
  - TREATMENT NONCOMPLIANCE [None]
  - TREMOR [None]
  - VISUAL ACUITY REDUCED [None]
  - WEIGHT INCREASED [None]
